FAERS Safety Report 7508796-7 (Version None)
Quarter: 2011Q2

REPORT INFORMATION
  Report Type: 
  Country: None (occurrence: None)
  Receive Date: 20110527
  Receipt Date: 20110310
  Transmission Date: 20111010
  Serious: No
  Sender: FDA-Public Use
  Company Number: A0918390A

PATIENT
  Sex: Female

DRUGS (1)
  1. VENTOLIN [Suspect]
     Route: 065
     Dates: start: 20110101

REACTIONS (7)
  - FEAR [None]
  - FALL [None]
  - FLUSHING [None]
  - DIZZINESS [None]
  - ADVERSE DRUG REACTION [None]
  - DYSPNOEA [None]
  - DISORIENTATION [None]
